FAERS Safety Report 7303594-1 (Version None)
Quarter: 2011Q1

REPORT INFORMATION
  Report Type: 
  Country: None (occurrence: None)
  Receive Date: 20110221
  Receipt Date: 20110207
  Transmission Date: 20110831
  Serious: Yes (Hospitalization, Other)
  Sender: FDA-Public Use
  Company Number: PHHY2011ZA12261

PATIENT
  Sex: Female

DRUGS (2)
  1. CO-DIOVAN [Suspect]
     Dosage: 160/12.5 MG
     Dates: start: 20110128
  2. NORVASC [Concomitant]
     Dosage: 10 MG, UNK

REACTIONS (7)
  - BLOOD PRESSURE INCREASED [None]
  - SWELLING [None]
  - DEPRESSED MOOD [None]
  - HYPERTENSION [None]
  - OEDEMA PERIPHERAL [None]
  - MALAISE [None]
  - FEELING ABNORMAL [None]
